FAERS Safety Report 7349390-0 (Version None)
Quarter: 2011Q1

REPORT INFORMATION
  Report Type: 
  Country: None (occurrence: None)
  Receive Date: 20110314
  Receipt Date: 20100614
  Transmission Date: 20110831
  Serious: No
  Sender: FDA-Public Use
  Company Number: US-ABBOTT-10P-163-0640781-00

PATIENT
  Age: 52 Year
  Sex: Male

DRUGS (8)
  1. DEPAKOTE [Suspect]
     Indication: BIPOLAR DISORDER
     Route: 048
     Dates: start: 20080101, end: 20100402
  2. DEPAKOTE [Suspect]
     Route: 048
     Dates: start: 20100403
  3. SEROQUEL [Suspect]
     Indication: BIPOLAR DISORDER
     Route: 048
     Dates: start: 20080501, end: 20090801
  4. SYNTHROID [Concomitant]
     Indication: HYPOTHYROIDISM
     Route: 048
  5. LEXAPRO [Suspect]
     Indication: DEPRESSION
     Route: 048
     Dates: start: 20080601
  6. LEXAPRO [Suspect]
     Indication: OBSESSIVE-COMPULSIVE DISORDER
  7. SEROQUEL [Suspect]
     Route: 048
     Dates: start: 20090801, end: 20100201
  8. SEROQUEL [Suspect]
     Route: 048
     Dates: start: 20100201, end: 20100302

REACTIONS (1)
  - SOMNOLENCE [None]
